APPROVED DRUG PRODUCT: CYPROHEPTADINE HYDROCHLORIDE
Active Ingredient: CYPROHEPTADINE HYDROCHLORIDE
Strength: 4MG
Dosage Form/Route: TABLET;ORAL
Application: A088212 | Product #001 | TE Code: AA
Applicant: CHARTWELL RX SCIENCES LLC
Approved: May 26, 1983 | RLD: No | RS: No | Type: RX